FAERS Safety Report 15286159 (Version 6)
Quarter: 2019Q3

REPORT INFORMATION
  Report Type: Spontaneous
  Country: LB (occurrence: LB)
  Receive Date: 20180816
  Receipt Date: 20190925
  Transmission Date: 20191004
  Serious: Yes (Other)
  Sender: FDA-Public Use
  Company Number: LB-SEATTLE GENETICS-2018SGN01973

PATIENT
  Sex: Male

DRUGS (1)
  1. ADCETRIS [Suspect]
     Active Substance: BRENTUXIMAB VEDOTIN
     Indication: HODGKIN^S DISEASE
     Dosage: 150 MG, Q21D
     Route: 042
     Dates: start: 201802

REACTIONS (4)
  - Visual impairment [Recovering/Resolving]
  - Toxicity to various agents [Recovering/Resolving]
  - Corneal deposits [Recovered/Resolved]
  - Visual acuity reduced [Recovered/Resolved]
